FAERS Safety Report 20793706 (Version 1)
Quarter: 2022Q2

REPORT INFORMATION
  Report Type: Spontaneous
  Country: US (occurrence: US)
  Receive Date: 20220506
  Receipt Date: 20220506
  Transmission Date: 20220721
  Serious: Yes (Other)
  Sender: FDA-Public Use
  Company Number: US-drreddys-LIT/USA/22/0149639

PATIENT
  Age: 9 Month
  Sex: Female

DRUGS (6)
  1. LORAZEPAM [Suspect]
     Active Substance: LORAZEPAM
     Indication: Status epilepticus
     Route: 042
  2. LORAZEPAM [Suspect]
     Active Substance: LORAZEPAM
     Dosage: ADDITIONAL DOSE
     Route: 042
  3. LEVETIRACETAM [Suspect]
     Active Substance: LEVETIRACETAM
     Indication: Status epilepticus
  4. FOSPHENYTOIN SODIUM [Suspect]
     Active Substance: FOSPHENYTOIN SODIUM
     Indication: Status epilepticus
  5. DIAZEPAM [Suspect]
     Active Substance: DIAZEPAM
     Indication: Status epilepticus
     Route: 054
  6. MIDAZOLAM [Suspect]
     Active Substance: MIDAZOLAM
     Indication: Status epilepticus

REACTIONS (1)
  - Drug ineffective [Unknown]
